FAERS Safety Report 18733717 (Version 1)
Quarter: 2021Q1

REPORT INFORMATION
  Report Type: Spontaneous
  Country: DE (occurrence: DE)
  Receive Date: 20210113
  Receipt Date: 20210113
  Transmission Date: 20210419
  Serious: Yes (Other)
  Sender: FDA-Public Use
  Company Number: DE-TEVA-2021-DE-1868541

PATIENT
  Age: 89 Year
  Sex: Male
  Weight: 90 kg

DRUGS (2)
  1. METOPROLOL RATIOPHARM 50 [Suspect]
     Active Substance: METOPROLOL
     Dosage: 2 DOSAGE FORMS DAILY;
     Route: 065
     Dates: start: 201101, end: 202012
  2. PANTOZOL [Concomitant]
     Active Substance: PANTOPRAZOLE SODIUM
     Dosage: 2 DOSAGE FORMS DAILY;
     Route: 065
     Dates: start: 202012

REACTIONS (1)
  - Gastric ulcer [Not Recovered/Not Resolved]

NARRATIVE: CASE EVENT DATE: 202012
